FAERS Safety Report 18674443 (Version 2)
Quarter: 2021Q1

REPORT INFORMATION
  Report Type: Spontaneous
  Country: JP (occurrence: JP)
  Receive Date: 20201229
  Receipt Date: 20210125
  Transmission Date: 20210419
  Serious: No
  Sender: FDA-Public Use
  Company Number: JP-009507513-2012JPN011881

PATIENT
  Age: 56 Year
  Sex: Male

DRUGS (4)
  1. MONTELUKAST SODIUM. [Suspect]
     Active Substance: MONTELUKAST SODIUM
     Indication: UPPER RESPIRATORY TRACT INFLAMMATION
     Dosage: 10 MG
     Route: 048
     Dates: start: 20201003, end: 20201010
  2. BILANOA [Suspect]
     Active Substance: BILASTINE
     Indication: UPPER RESPIRATORY TRACT INFLAMMATION
     Dosage: 20 MG
     Route: 048
     Dates: start: 20201003, end: 20201010
  3. MEIACT MS [Concomitant]
     Active Substance: CEFDITOREN PIVOXIL
     Indication: UPPER RESPIRATORY TRACT INFLAMMATION
     Dosage: UNK
     Dates: start: 20201003, end: 20201010
  4. TRANSAMIN [Concomitant]
     Active Substance: TRANEXAMIC ACID
     Indication: UPPER RESPIRATORY TRACT INFLAMMATION
     Dosage: UNK
     Dates: start: 20201003, end: 20201010

REACTIONS (1)
  - Alopecia areata [Not Recovered/Not Resolved]

NARRATIVE: CASE EVENT DATE: 202010
